FAERS Safety Report 7304047-7 (Version None)
Quarter: 2011Q1

REPORT INFORMATION
  Report Type: 
  Country: None (occurrence: None)
  Receive Date: 20110221
  Receipt Date: 20110208
  Transmission Date: 20110831
  Serious: Yes (Hospitalization, Other)
  Sender: FDA-Public Use
  Company Number: PHHY2010DE66139

PATIENT
  Sex: Male

DRUGS (14)
  1. RASILEZ [Suspect]
     Indication: HYPERTENSION
     Dosage: 1 DF, QD
     Dates: start: 20080401
  2. INSPRA [Concomitant]
     Dosage: 50 MG
  3. RASILEZ [Suspect]
     Dosage: 0.5 DF, QD
  4. RASILEZ [Suspect]
     Dosage: 0.25 DF, QD
     Dates: end: 20101001
  5. RASILEZ [Suspect]
     Dosage: 0.25 DF, QD
     Dates: start: 20090901
  6. DIURETICS [Concomitant]
     Dosage: UNK
  7. TORSEMIDE [Concomitant]
     Dosage: UNK
  8. RASILEZ [Suspect]
     Dosage: 150 MG, UNK
     Dates: start: 20100101
  9. RASILEZ [Suspect]
     Dosage: 0.5 DF, QD
  10. RASILEZ [Suspect]
     Dosage: 1 DF, QD
  11. GODAMED [Concomitant]
     Dosage: UNK
  12. TRIMIPRAMINE [Concomitant]
     Dosage: UNK
  13. TRIAMTERENE AND HYDROCHLOROTHIAZIDE [Concomitant]
     Dosage: UNK
  14. INEGY [Concomitant]
     Dosage: UNK

REACTIONS (13)
  - SOMNOLENCE [None]
  - HEART RATE DECREASED [None]
  - DIZZINESS [None]
  - CIRCULATORY COLLAPSE [None]
  - TREMOR [None]
  - AGITATION [None]
  - FACE INJURY [None]
  - HYPOTENSION [None]
  - SWELLING FACE [None]
  - CONTUSION [None]
  - MALAISE [None]
  - OEDEMA PERIPHERAL [None]
  - LACERATION [None]
